FAERS Safety Report 16413183 (Version 2)
Quarter: 2019Q3

REPORT INFORMATION
  Report Type: Report from Study
  Country: None (occurrence: GR)
  Receive Date: 20190611
  Receipt Date: 20190708
  Transmission Date: 20191004
  Serious: Yes (Hospitalization)
  Sender: FDA-Public Use
  Company Number: GR-ABBVIE-19S-066-2810786-00

PATIENT
  Age: 67 Year
  Sex: Female
  Weight: 58 kg

DRUGS (3)
  1. DUODOPA [Suspect]
     Active Substance: CARBIDOPA\LEVODOPA
     Indication: PARKINSON^S DISEASE
     Route: 050
     Dates: start: 20190531, end: 20190604
  2. LEVOTHYROXINE SODIUM (T4) [Concomitant]
     Indication: HYPOTHYROIDISM
     Route: 048
  3. DUODOPA [Suspect]
     Active Substance: CARBIDOPA\LEVODOPA
     Dosage: CD: 3.8 ML/H (08:00-22:00) AND 3.0 ML/H (22:00-08:00); ED: 1.9 ML/H
     Route: 050
     Dates: start: 20190604

REACTIONS (3)
  - Dizziness [Recovered/Resolved]
  - C-reactive protein increased [Recovered/Resolved]
  - Blood pressure decreased [Not Recovered/Not Resolved]

NARRATIVE: CASE EVENT DATE: 20190605
